FAERS Safety Report 15758127 (Version 2)
Quarter: 2018Q4

REPORT INFORMATION
  Report Type: Spontaneous
  Country: US (occurrence: US)
  Receive Date: 20181225
  Receipt Date: 20181228
  Transmission Date: 20190205
  Serious: Yes (Hospitalization)
  Sender: FDA-Public Use
  Company Number: US-ASTRAZENECA-2018SF68639

PATIENT
  Age: 1017 Month
  Sex: Male
  Weight: 93 kg

DRUGS (3)
  1. KOMBIGLYZE XR [Suspect]
     Active Substance: METFORMIN HYDROCHLORIDE\SAXAGLIPTIN HYDROCHLORIDE
     Indication: TYPE 2 DIABETES MELLITUS
     Route: 048
  2. KOMBIGLYZE XR [Suspect]
     Active Substance: METFORMIN HYDROCHLORIDE\SAXAGLIPTIN HYDROCHLORIDE
     Indication: TYPE 2 DIABETES MELLITUS
     Route: 048
  3. KOMBIGLYZE XR [Suspect]
     Active Substance: METFORMIN HYDROCHLORIDE\SAXAGLIPTIN HYDROCHLORIDE
     Indication: TYPE 2 DIABETES MELLITUS
     Route: 048

REACTIONS (9)
  - Memory impairment [Unknown]
  - Urosepsis [Not Recovered/Not Resolved]
  - Urinary tract infection [Unknown]
  - Limb discomfort [Unknown]
  - Off label use [Not Recovered/Not Resolved]
  - Circumstance or information capable of leading to device use error [Unknown]
  - Product packaging issue [Unknown]
  - Nephrolithiasis [Unknown]
  - Sepsis [Unknown]

NARRATIVE: CASE EVENT DATE: 201806
